FAERS Safety Report 6594323-8 (Version None)
Quarter: 2010Q1

REPORT INFORMATION
  Report Type: 
  Country: None (occurrence: None)
  Receive Date: 20100222
  Receipt Date: 20100217
  Transmission Date: 20100710
  Serious: Yes (Other)
  Sender: FDA-Public Use
  Company Number: US-SANOFI-AVENTIS-A03200903277

PATIENT
  Age: 31 Year
  Sex: Male
  Weight: 85.72 kg

DRUGS (7)
  1. ZOLPIDEM TARTRATE [Suspect]
     Indication: SLEEP DISORDER
     Dosage: UNIT DOSE:  MG
     Route: 048
     Dates: end: 20040801
  2. AMBIEN CR [Suspect]
     Route: 065
  3. ALCOHOL [Concomitant]
     Route: 048
  4. HERBAL PREPARATION [Concomitant]
     Route: 065
  5. RESTORIL [Concomitant]
     Route: 048
  6. LEXAPRO [Concomitant]
     Route: 048
  7. CELEXA [Concomitant]
     Route: 048

REACTIONS (5)
  - AMNESIA [None]
  - DRUG INEFFECTIVE [None]
  - SEXUAL ABUSE [None]
  - SOMNAMBULISM [None]
  - THERAPEUTIC RESPONSE DECREASED [None]
